FAERS Safety Report 17605378 (Version 1)
Quarter: 2020Q1

REPORT INFORMATION
  Report Type: Spontaneous
  Country: US (occurrence: US)
  Receive Date: 20200330
  Receipt Date: 20200330
  Transmission Date: 20200409
  Serious: Yes (Life-Threatening, Hospitalization)
  Sender: FDA-Public Use
  Company Number: None

PATIENT
  Age: 68 Year
  Sex: Male
  Weight: 77 kg

DRUGS (1)
  1. DARATUMUMAB (DARATUMUMAB 20MG/ML INJ, SOLN) [Suspect]
     Active Substance: DARATUMUMAB
     Indication: POEMS SYNDROME
     Route: 042
     Dates: start: 20180711, end: 20180711

REACTIONS (3)
  - Hypoxia [None]
  - Hypotension [None]
  - Anaphylactic reaction [None]

NARRATIVE: CASE EVENT DATE: 20180711
